FAERS Safety Report 25190489 (Version 2)
Quarter: 2025Q2

REPORT INFORMATION
  Report Type: Spontaneous
  Country: SK (occurrence: SK)
  Receive Date: 20250411
  Receipt Date: 20250424
  Transmission Date: 20250716
  Serious: Yes (Other)
  Sender: ABBVIE
  Company Number: SK-JNJFOC-20250407040

PATIENT

DRUGS (2)
  1. IMBRUVICA [Suspect]
     Active Substance: IBRUTINIB
     Indication: Chronic lymphocytic leukaemia
     Route: 048
  2. ACALABRUTINIB [Suspect]
     Active Substance: ACALABRUTINIB
     Indication: Chronic lymphocytic leukaemia
     Route: 065

REACTIONS (7)
  - Neutropenia [Unknown]
  - Haemorrhage [Unknown]
  - Haematotoxicity [Unknown]
  - Drug ineffective [Unknown]
  - Cardiovascular disorder [Unknown]
  - Infection [Unknown]
  - Drug ineffective [Unknown]
